FAERS Safety Report 11654608 (Version 1)
Quarter: 2015Q4

REPORT INFORMATION
  Report Type: Spontaneous
  Country: US (occurrence: US)
  Receive Date: 20151023
  Receipt Date: 20151023
  Transmission Date: 20160304
  Serious: Yes (Other)
  Sender: FDA-Public Use
  Company Number: US-BAYER-2010-006645

PATIENT
  Age: 75 Year
  Sex: Female
  Weight: 61.22 kg

DRUGS (11)
  1. GABAPENTIN. [Concomitant]
     Active Substance: GABAPENTIN
  2. OXYCODONE [Concomitant]
     Active Substance: OXYCODONE
     Dosage: 30 MG, BID
  3. NUVIGIL [Concomitant]
     Active Substance: ARMODAFINIL
  4. PREDNISONE. [Concomitant]
     Active Substance: PREDNISONE
     Indication: EYE OPERATION
     Route: 047
  5. NAPROXEN SODIUM LIQUID GEL CAPSULES [Suspect]
     Active Substance: NAPROXEN SODIUM
     Indication: HEADACHE
     Dosage: 1 DF, BID (1 AM AND 1 PM)
     Route: 048
     Dates: start: 20101210, end: 2010
  6. ARMOUR THYROID [Concomitant]
     Active Substance: THYROID, PORCINE\THYROID, UNSPECIFIED
  7. CHLORDIAZEPOXIDE [Concomitant]
     Active Substance: CHLORDIAZEPOXIDE
  8. NAPROXEN SODIUM LIQUID GEL CAPSULES [Suspect]
     Active Substance: NAPROXEN SODIUM
     Indication: FIBROMYALGIA
  9. NAPROXEN SODIUM LIQUID GEL CAPSULES [Suspect]
     Active Substance: NAPROXEN SODIUM
     Indication: MYALGIA
  10. MULTIVITAMIN [Concomitant]
     Active Substance: VITAMINS
  11. ALEVE [Suspect]
     Active Substance: NAPROXEN SODIUM
     Indication: HEADACHE
     Dosage: 220 MG, QOD
     Route: 048
     Dates: start: 20101210

REACTIONS (6)
  - Blood pressure decreased [Recovered/Resolved]
  - Nausea [Recovered/Resolved]
  - Dizziness [Recovered/Resolved]
  - Retching [Recovered/Resolved]
  - Blood pressure increased [Recovered/Resolved]
  - Palpitations [Recovered/Resolved]

NARRATIVE: CASE EVENT DATE: 20101218
